FAERS Safety Report 18886575 (Version 1)
Quarter: 2021Q1

REPORT INFORMATION
  Report Type: Spontaneous
  Country: SG (occurrence: SG)
  Receive Date: 20210212
  Receipt Date: 20210212
  Transmission Date: 20210420
  Serious: Yes (Other)
  Sender: FDA-Public Use
  Company Number: SG-AMNEAL PHARMACEUTICALS-2021-AMRX-00303

PATIENT
  Sex: Male

DRUGS (1)
  1. ALBENZA [Suspect]
     Active Substance: ALBENDAZOLE
     Indication: PRODUCT USED FOR UNKNOWN INDICATION
     Dosage: UNK
     Route: 065

REACTIONS (1)
  - Dermatitis exfoliative [Unknown]
